FAERS Safety Report 10850963 (Version 1)
Quarter: 2015Q1

REPORT INFORMATION
  Report Type: Spontaneous
  Country: US (occurrence: US)
  Receive Date: 20150222
  Receipt Date: 20150222
  Transmission Date: 20150721
  Serious: No
  Sender: FDA-Public Use
  Company Number: US-ALLERGAN-1400124US

PATIENT
  Sex: Male

DRUGS (5)
  1. BOTOX COSMETIC [Suspect]
     Active Substance: ONABOTULINUMTOXINA
     Dosage: 28 UNITS, SINGLE
     Route: 030
     Dates: start: 20131202, end: 20131202
  2. ANTIDEPRESSANT NOS [Concomitant]
     Active Substance: UNSPECIFIED INGREDIENT
     Indication: PRODUCT USED FOR UNKNOWN INDICATION
  3. BOTOX COSMETIC [Suspect]
     Active Substance: ONABOTULINUMTOXINA
     Dosage: 14 UNITS, SINGLE
     Route: 030
     Dates: start: 20131202, end: 20131202
  4. BOTOX COSMETIC [Suspect]
     Active Substance: ONABOTULINUMTOXINA
     Indication: SKIN WRINKLING
     Dosage: 14 UNITS, SINGLE
     Route: 030
     Dates: start: 20131215, end: 20131215
  5. BOTOX COSMETIC [Suspect]
     Active Substance: ONABOTULINUMTOXINA
     Indication: SKIN WRINKLING
     Dosage: 28 UNITS, SINGLE
     Dates: start: 20131215, end: 20131215

REACTIONS (3)
  - Drug ineffective [Unknown]
  - Off label use [Unknown]
  - Wrong technique in drug usage process [Unknown]
